FAERS Safety Report 9996590 (Version 1)
Quarter: 2014Q1

REPORT INFORMATION
  Report Type: Report from Study
  Country: AT (occurrence: AT)
  Receive Date: 20140311
  Receipt Date: 20140311
  Transmission Date: 20141002
  Serious: Yes (Other)
  Sender: FDA-Public Use
  Company Number: AT-VERTEX PHARMACEUTICALS INC-2014-001205

PATIENT
  Age: 33 Year
  Sex: Female

DRUGS (9)
  1. INCIVO [Suspect]
     Indication: HEPATITIS C
     Dosage: UNK
     Route: 065
  2. PEGASYS [Suspect]
     Indication: PRODUCT USED FOR UNKNOWN INDICATION
     Dosage: 180 ?G, QW
     Route: 065
  3. COPEGUS [Suspect]
     Indication: PRODUCT USED FOR UNKNOWN INDICATION
     Dosage: 400 MG, UNK
     Route: 065
  4. COPEGUS [Suspect]
     Dosage: 1000 MG, UNK
     Route: 065
  5. COPEGUS [Suspect]
     Dosage: 600 MG, UNK
     Route: 065
  6. SUBSTITOL [Concomitant]
     Indication: PRODUCT USED FOR UNKNOWN INDICATION
     Dosage: 120 MG, 6 TIMES A DAY
     Route: 065
  7. PRAXITEN [Concomitant]
     Indication: PRODUCT USED FOR UNKNOWN INDICATION
     Dosage: 50 MG, BID
     Route: 065
  8. SOMNUBENE [Concomitant]
     Indication: PRODUCT USED FOR UNKNOWN INDICATION
     Dosage: 1 MG, TID
     Route: 065
  9. TRESLEEN [Concomitant]
     Indication: PRODUCT USED FOR UNKNOWN INDICATION
     Dosage: 50 MG, QD
     Route: 065

REACTIONS (12)
  - Transferrin saturation increased [Recovering/Resolving]
  - Neutropenia [Unknown]
  - Leukopenia [Unknown]
  - Haemoglobin decreased [Unknown]
  - Urinary tract infection [Unknown]
  - Dyspepsia [Unknown]
  - Insomnia [Unknown]
  - Dyspnoea [Unknown]
  - Pyrexia [Unknown]
  - Dry skin [Unknown]
  - Vomiting [Unknown]
  - Nausea [Unknown]
